FAERS Safety Report 25800839 (Version 2)
Quarter: 2025Q4

REPORT INFORMATION
  Report Type: Report from Study
  Country: CA (occurrence: CA)
  Receive Date: 20250915
  Receipt Date: 20251006
  Transmission Date: 20260117
  Serious: Yes (Other)
  Sender: ALEXION PHARMACEUTICALS
  Company Number: CA-AstraZeneca-CH-00949689A

PATIENT
  Age: 73 Year
  Sex: Female
  Weight: 58.967 kg

DRUGS (1)
  1. OSIMERTINIB [Suspect]
     Active Substance: OSIMERTINIB
     Indication: Non-small cell lung cancer stage III
     Dosage: 80 MILLIGRAM, QD
     Dates: start: 20250423

REACTIONS (7)
  - Kidney infection [Unknown]
  - Faeces discoloured [Unknown]
  - Nausea [Unknown]
  - Diarrhoea [Unknown]
  - Therapy interrupted [Unknown]
  - Urinary tract disorder [Unknown]
  - Gastrointestinal disorder [Unknown]
